FAERS Safety Report 11145095 (Version 5)
Quarter: 2015Q4

REPORT INFORMATION
  Report Type: Spontaneous
  Country: US (occurrence: US)
  Receive Date: 20150526
  Receipt Date: 20151103
  Transmission Date: 20160304
  Serious: Yes (Hospitalization)
  Sender: FDA-Public Use
  Company Number: US-BEH-2015051214

PATIENT
  Age: 57 Year
  Sex: Male
  Weight: 85 kg

DRUGS (5)
  1. ALBURX [Suspect]
     Active Substance: ALBUMIN (HUMAN)
     Indication: PLASMAPHERESIS
     Route: 042
     Dates: start: 20150513, end: 20150513
  2. ALBURX [Suspect]
     Active Substance: ALBUMIN (HUMAN)
     Route: 042
     Dates: start: 20150516, end: 20150516
  3. ALBURX [Suspect]
     Active Substance: ALBUMIN (HUMAN)
     Indication: KIDNEY TRANSPLANT REJECTION
     Dosage: 1 VOLUME EXCHANGE VIA PERMACATH
     Route: 042
     Dates: start: 20150513, end: 20150513
  4. ALBURX [Suspect]
     Active Substance: ALBUMIN (HUMAN)
     Route: 042
     Dates: start: 20150512, end: 20150512
  5. ALBURX [Suspect]
     Active Substance: ALBUMIN (HUMAN)
     Route: 042
     Dates: start: 20150514, end: 20150514

REACTIONS (3)
  - Nausea [Recovered/Resolved]
  - Headache [Recovered/Resolved]
  - Back pain [Recovered/Resolved]

NARRATIVE: CASE EVENT DATE: 20150513
